FAERS Safety Report 16173986 (Version 2)
Quarter: 2019Q4

REPORT INFORMATION
  Report Type: Spontaneous
  Country: US (occurrence: US)
  Receive Date: 20190409
  Receipt Date: 20191014
  Transmission Date: 20200122
  Serious: Yes (Other)
  Sender: FDA-Public Use
  Company Number: US-SA-2019SA097384

PATIENT
  Sex: Male

DRUGS (2)
  1. CERDELGA [Suspect]
     Active Substance: ELIGLUSTAT
     Indication: GAUCHER^S DISEASE
     Dosage: 84 MG, BID
     Route: 048
     Dates: start: 201608, end: 201903
  2. CIMETIDINE [Suspect]
     Active Substance: CIMETIDINE
     Dosage: 1 DF
     Route: 065
     Dates: start: 20190325, end: 20190326

REACTIONS (8)
  - Electrocardiogram abnormal [Recovered/Resolved]
  - Contraindicated product administered [Unknown]
  - Troponin increased [Recovered/Resolved]
  - Chest pain [Recovered/Resolved]
  - Headache [Recovered/Resolved]
  - Coronary artery occlusion [Unknown]
  - Blood pressure abnormal [Recovered/Resolved]
  - Acute myocardial infarction [Recovered/Resolved]

NARRATIVE: CASE EVENT DATE: 201903
